FAERS Safety Report 9176898 (Version 2)
Quarter: 2013Q2

REPORT INFORMATION
  Report Type: Spontaneous
  Country: US (occurrence: US)
  Receive Date: 20130321
  Receipt Date: 20130411
  Transmission Date: 20140414
  Serious: No
  Sender: FDA-Public Use
  Company Number: US-PFIZER INC-2013090660

PATIENT
  Age: 55 Year
  Sex: Male

DRUGS (3)
  1. CAMPTOSAR [Suspect]
     Indication: COLON CANCER STAGE IV
     Dosage: 380 MG, CYCLIC (EVERY TWO WEEKS), 180 MG/M2
     Route: 042
     Dates: start: 20120709, end: 20130218
  2. FLUOROURACIL [Concomitant]
     Indication: COLON CANCER STAGE IV
     Dosage: UNK
     Route: 042
     Dates: start: 20120709, end: 20130218
  3. FOLINIC ACID [Concomitant]
     Indication: COLON CANCER STAGE IV
     Dosage: UNK
     Route: 042
     Dates: start: 20120709, end: 20130218

REACTIONS (2)
  - Disease progression [Not Recovered/Not Resolved]
  - Colon cancer stage IV [Not Recovered/Not Resolved]
